FAERS Safety Report 7718780 (Version 2)
Quarter: 2013Q1

REPORT INFORMATION
  Report Type: Spontaneous
  Country: US (occurrence: None)
  Receive Date: 20101124
  Receipt Date: 20121113
  Transmission Date: 20140127
  Serious: Yes (Hospitalization)
  Sender: FDA-Public Use
  Company Number: 2010AP002427

PATIENT
  Age: 41 Year
  Sex: Female

DRUGS (3)
  1. OXCARBAZEPINE [Suspect]
     Dosage: PO
     Route: 048
  2. VENLAFAXINE [Concomitant]
  3. CETIRIZINE HYDROCHLORIDE [Concomitant]

REACTIONS (9)
  - ACCELERATED IDIOVENTRICULAR RHYTHM [None]
  - ATRIOVENTRICULAR DISSOCIATION [None]
  - INTENTIONAL OVERDOSE [None]
  - MENTAL STATUS CHANGES [None]
  - DISORIENTATION [None]
  - DYSARTHRIA [None]
  - ABNORMAL BEHAVIOUR [None]
  - BLOOD POTASSIUM DECREASED [None]
  - BLOOD ALCOHOL INCREASED [None]
